FAERS Safety Report 4637764-8 (Version None)
Quarter: 2005Q2

REPORT INFORMATION
  Report Type: 
  Country: None (occurrence: None)
  Receive Date: 20050328
  Receipt Date: 20050117
  Transmission Date: 20051028
  Serious: No
  Sender: FDA-Public Use
  Company Number: USA050188559

PATIENT
  Age: 7 Year
  Sex: Male
  Weight: 26 kg

DRUGS (1)
  1. STRATTERA [Suspect]
     Indication: ATTENTION DEFICIT/HYPERACTIVITY DISORDER
     Dosage: 25 MG IN THE EVENING
     Dates: start: 20041214

REACTIONS (6)
  - ABDOMINAL PAIN UPPER [None]
  - AGGRESSION [None]
  - APATHY [None]
  - DISTURBANCE IN ATTENTION [None]
  - INTERMITTENT EXPLOSIVE DISORDER [None]
  - SOCIAL AVOIDANT BEHAVIOUR [None]
